FAERS Safety Report 16413718 (Version 4)
Quarter: 2019Q4

REPORT INFORMATION
  Report Type: Spontaneous
  Country: CA (occurrence: CA)
  Receive Date: 20190611
  Receipt Date: 20191106
  Transmission Date: 20200122
  Serious: Yes (Hospitalization, Other)
  Sender: FDA-Public Use
  Company Number: CA-TEVA-2019-CA-1061814

PATIENT
  Age: 13 Year
  Sex: Male

DRUGS (7)
  1. DOXYCYCLINE. [Suspect]
     Active Substance: DOXYCYCLINE
     Indication: ACNE CONGLOBATA
     Route: 048
  2. DOXYCYCLINE. [Suspect]
     Active Substance: DOXYCYCLINE
     Route: 048
  3. APO-DOXY CAP 100MG (DOXYCYCLINE HYCLATE) [Suspect]
     Active Substance: DOXYCYCLINE HYCLATE
     Indication: ACNE CONGLOBATA
     Route: 065
  4. DOXYCYCLINE. [Suspect]
     Active Substance: DOXYCYCLINE
     Route: 065
  5. PREDNISONE. [Suspect]
     Active Substance: PREDNISONE
     Indication: NEUTROPHILIC DERMATOSIS
     Route: 065
  6. ISOTRETINOIN. [Suspect]
     Active Substance: ISOTRETINOIN
     Indication: ACNE CONGLOBATA
     Dosage: .5 MG/KG DAILY;
     Route: 048
  7. ISOTRETINOIN. [Suspect]
     Active Substance: ISOTRETINOIN
     Route: 065

REACTIONS (15)
  - Acne conglobata [Unknown]
  - Neutrophilic dermatosis [Unknown]
  - Pyrexia [Unknown]
  - Rebound effect [Unknown]
  - Drug ineffective [Unknown]
  - Condition aggravated [Unknown]
  - Pain [Unknown]
  - Myalgia [Unknown]
  - Skin plaque [Unknown]
  - Product administered to patient of inappropriate age [Unknown]
  - Arthralgia [Unknown]
  - Acne [Unknown]
  - Intentional product use issue [Unknown]
  - Skin ulcer [Unknown]
  - Off label use [Unknown]
